FAERS Safety Report 4436730-5 (Version None)
Quarter: 2004Q3

REPORT INFORMATION
  Report Type: 
  Country: None (occurrence: None)
  Receive Date: 20040728
  Receipt Date: 20040203
  Transmission Date: 20050211
  Serious: Yes (Hospitalization)
  Sender: FDA-Public Use
  Company Number: 202014

PATIENT
  Age: 44 Year
  Sex: Male

DRUGS (4)
  1. RITUXAN [Suspect]
     Indication: LYMPHOMA
     Dosage: 375 MG/M2, 1/MONTH, INTRAVENOUS
     Route: 042
     Dates: start: 20040714, end: 20030811
  2. CYTOXAN [Concomitant]
  3. VINCRISTINE [Concomitant]
  4. PREDNISONE [Concomitant]

REACTIONS (3)
  - HYPOTENSION [None]
  - HYPOXIA [None]
  - PLEURAL EFFUSION [None]
